FAERS Safety Report 15496540 (Version 1)
Quarter: 2018Q4

REPORT INFORMATION
  Report Type: Spontaneous
  Country: US (occurrence: US)
  Receive Date: 20181013
  Receipt Date: 20181013
  Transmission Date: 20190205
  Serious: No
  Sender: FDA-Public Use
  Company Number: US-SHIRE-US201838981

PATIENT
  Sex: Male

DRUGS (1)
  1. VYVANSE [Suspect]
     Active Substance: LISDEXAMFETAMINE DIMESYLATE
     Indication: PRODUCT USED FOR UNKNOWN INDICATION
     Dosage: 70 MG, 1X/DAY:QD
     Route: 048
     Dates: start: 2018

REACTIONS (4)
  - Wrong technique in product usage process [Unknown]
  - Therapeutic response unexpected [Unknown]
  - Unevaluable event [Unknown]
  - Product physical issue [Unknown]

NARRATIVE: CASE EVENT DATE: 2018
